FAERS Safety Report 23326646 (Version 4)
Quarter: 2024Q3

REPORT INFORMATION
  Report Type: Spontaneous
  Country: US (occurrence: US)
  Receive Date: 20231221
  Receipt Date: 20240710
  Transmission Date: 20241017
  Serious: No
  Sender: PFIZER
  Company Number: US-PFIZER INC-PV202300201138

PATIENT
  Age: 75 Year
  Sex: Female
  Weight: 79.365 kg

DRUGS (2)
  1. TIKOSYN [Suspect]
     Active Substance: DOFETILIDE
     Indication: Atrial fibrillation
     Dosage: 1 CAPSULE (250 MCG TOTAL) BY MOUTH IN THE MORNING AND 1 CAPSULE (250 MCG TOTAL) BEFORE BEDTIME
     Route: 048
  2. TIKOSYN [Suspect]
     Active Substance: DOFETILIDE
     Indication: Atrial flutter

REACTIONS (2)
  - Visual impairment [Unknown]
  - Off label use [Unknown]
